FAERS Safety Report 17261928 (Version 1)
Quarter: 2020Q1

REPORT INFORMATION
  Report Type: Spontaneous
  Country: GB (occurrence: GB)
  Receive Date: 20200110
  Receipt Date: 20200110
  Transmission Date: 20200409
  Serious: No
  Sender: FDA-Public Use
  Company Number: None

PATIENT
  Age: 34 Year
  Sex: Female
  Weight: 68 kg

DRUGS (3)
  1. COD LIVER OIL [Concomitant]
     Active Substance: COD LIVER OIL
  2. SOOLANTRA [Suspect]
     Active Substance: IVERMECTIN
     Indication: ROSACEA
     Route: 061
     Dates: start: 20200101
  3. FOLIC ACID. [Concomitant]
     Active Substance: FOLIC ACID

REACTIONS (7)
  - Dry throat [None]
  - Dry mouth [None]
  - Nausea [None]
  - Insomnia [None]
  - Skin burning sensation [None]
  - Skin irritation [None]
  - Anxiety [None]

NARRATIVE: CASE EVENT DATE: 20200110
